FAERS Safety Report 11469851 (Version 1)
Quarter: 2015Q3

REPORT INFORMATION
  Report Type: Spontaneous
  Country: KR (occurrence: KR)
  Receive Date: 20150908
  Receipt Date: 20150908
  Transmission Date: 20151125
  Serious: Yes (Other)
  Sender: FDA-Public Use
  Company Number: KR-MYLANLABS-2015M1029773

PATIENT

DRUGS (3)
  1. EBASTINE [Suspect]
     Active Substance: EBASTINE
     Indication: ANAPHYLAXIS PROPHYLAXIS
     Dosage: 10MG TWICE DAILY
     Route: 065
  2. EBASTINE [Suspect]
     Active Substance: EBASTINE
     Dosage: 10MG ONCE DAILY
     Route: 065
  3. CETIRIZINE [Suspect]
     Active Substance: CETIRIZINE HYDROCHLORIDE
     Indication: ANAPHYLAXIS PROPHYLAXIS
     Route: 065

REACTIONS (1)
  - Gynaecomastia [Recovered/Resolved]
